FAERS Safety Report 8600329-7 (Version None)
Quarter: 2012Q3

REPORT INFORMATION
  Report Type: 
  Country: None (occurrence: None)
  Receive Date: 20120817
  Receipt Date: 20120808
  Transmission Date: 20120928
  Serious: Yes (Hospitalization)
  Sender: FDA-Public Use
  Company Number: CA-BRISTOL-MYERS SQUIBB COMPANY-16836207

PATIENT
  Age: 40 Year
  Sex: Female

DRUGS (4)
  1. RANITIDINE [Concomitant]
  2. HYDROMORPHONE HCL [Concomitant]
  3. YERVOY [Suspect]
     Indication: METASTATIC MALIGNANT MELANOMA
     Route: 042
     Dates: start: 20120614, end: 20120710
  4. DEXAMETHASONE [Concomitant]

REACTIONS (1)
  - CHEST PAIN [None]
